FAERS Safety Report 20574341 (Version 1)
Quarter: 2022Q1

REPORT INFORMATION
  Report Type: Spontaneous
  Country: US (occurrence: US)
  Receive Date: 20220309
  Receipt Date: 20220309
  Transmission Date: 20220423
  Serious: No
  Sender: FDA-Public Use
  Company Number: US-BIOMARINAP-US-2022-141894

PATIENT
  Sex: Male
  Weight: 97.506 kg

DRUGS (1)
  1. PALYNZIQ [Suspect]
     Active Substance: PEGVALIASE-PQPZ
     Indication: Phenylketonuria
     Dosage: 60 MILLIGRAM, QD
     Route: 058

REACTIONS (4)
  - Dizziness [Unknown]
  - Injection site erythema [Unknown]
  - Vestibular migraine [Unknown]
  - Anxiety [Unknown]
